FAERS Safety Report 7325996-X (Version None)
Quarter: 2011Q1

REPORT INFORMATION
  Report Type: 
  Country: None (occurrence: None)
  Receive Date: 20110302
  Receipt Date: 20110224
  Transmission Date: 20110831
  Serious: No
  Sender: FDA-Public Use
  Company Number: US-PFIZER INC-2011041625

PATIENT
  Sex: Male
  Weight: 86.168 kg

DRUGS (2)
  1. AMBIEN [Concomitant]
     Indication: SLEEP DISORDER
     Dosage: 150 MG, 2X/DAY
  2. LYRICA [Suspect]
     Indication: SCIATICA
     Dosage: 75 MG, 2X/DAY
     Route: 048
     Dates: start: 20110201

REACTIONS (1)
  - WEIGHT INCREASED [None]
